FAERS Safety Report 5806199-4 (Version None)
Quarter: 2008Q3

REPORT INFORMATION
  Report Type: 
  Country: None (occurrence: None)
  Receive Date: 20080709
  Receipt Date: 20080709
  Transmission Date: 20090109
  Serious: Yes (Disabling)
  Sender: FDA-Public Use
  Company Number: None

PATIENT
  Sex: Male

DRUGS (5)
  1. MARCAINE [Suspect]
     Indication: LIGAMENT RUPTURE
     Dosage: 014
     Dates: start: 20050531, end: 20050602
  2. MARCAINE [Suspect]
     Indication: PERIARTHRITIS
     Dosage: 014
     Dates: start: 20050531, end: 20050602
  3. MEDICATION UNKNOWN TO ME [Suspect]
     Indication: LIGAMENT LAXITY
     Dosage: 014
     Dates: start: 20030603
  4. STRYKER PAIN BUST [Concomitant]
  5. STRYKER 2 DAY INFUSION KIT [Concomitant]

REACTIONS (3)
  - MOVEMENT DISORDER [None]
  - OSTEOARTHRITIS [None]
  - PAIN [None]
